FAERS Safety Report 13994490 (Version 1)
Quarter: 2017Q3

REPORT INFORMATION
  Report Type: Spontaneous
  Country: IT (occurrence: IT)
  Receive Date: 20170920
  Receipt Date: 20170920
  Transmission Date: 20171128
  Serious: Yes (Other)
  Sender: FDA-Public Use
  Company Number: IT-MYLANLABS-2017M1057387

PATIENT
  Age: 71 Year
  Sex: Female

DRUGS (1)
  1. CLOPIDOGREL MYLAN GENERICS 75 MG COMPRESSE RIVESTITE CON FILM [Suspect]
     Active Substance: CLOPIDOGREL BISULFATE
     Indication: PRODUCT USED FOR UNKNOWN INDICATION
     Dosage: 75 MG DAILY
     Route: 048
     Dates: start: 20170816, end: 20170816

REACTIONS (2)
  - Rash [Unknown]
  - Epiglottic oedema [Unknown]

NARRATIVE: CASE EVENT DATE: 20170816
